FAERS Safety Report 20135176 (Version 1)
Quarter: 2021Q4

REPORT INFORMATION
  Report Type: Report from Study
  Country: EG (occurrence: EG)
  Receive Date: 20211201
  Receipt Date: 20211201
  Transmission Date: 20220303
  Serious: Yes (Other)
  Sender: FDA-Public Use
  Company Number: EG-NOVARTISPH-NVSC2021EG272543

PATIENT
  Age: 46 Year
  Sex: Female

DRUGS (2)
  1. GILENYA [Suspect]
     Active Substance: FINGOLIMOD HYDROCHLORIDE
     Indication: Multiple sclerosis
     Dosage: 0.5 MG, QD
     Route: 048
     Dates: start: 202010
  2. DOROFEN [Concomitant]
     Indication: Joint stiffness
     Dosage: UNK DOSAGE FORM, QD
     Route: 048
     Dates: start: 2010

REACTIONS (13)
  - Diarrhoea [Not Recovered/Not Resolved]
  - Hypokalaemia [Recovering/Resolving]
  - Tachycardia [Recovering/Resolving]
  - Balance disorder [Recovering/Resolving]
  - Hypotension [Recovering/Resolving]
  - Dyspnoea [Recovering/Resolving]
  - Dizziness [Recovering/Resolving]
  - Depression [Recovering/Resolving]
  - Stress [Recovering/Resolving]
  - Multiple sclerosis [Recovering/Resolving]
  - Limb discomfort [Recovering/Resolving]
  - Disturbance in attention [Recovering/Resolving]
  - White blood cell count decreased [Unknown]

NARRATIVE: CASE EVENT DATE: 20210401
